FAERS Safety Report 7580080-5 (Version None)
Quarter: 2011Q2

REPORT INFORMATION
  Report Type: 
  Country: None (occurrence: None)
  Receive Date: 20110629
  Receipt Date: 20110620
  Transmission Date: 20111010
  Serious: Yes (Other)
  Sender: FDA-Public Use
  Company Number: PT-MPIJNJ-2011-02701

PATIENT

DRUGS (3)
  1. MELPHALAN HYDROCHLORIDE [Concomitant]
     Indication: MULTIPLE MYELOMA
     Dosage: UNK
     Route: 048
     Dates: start: 20110401
  2. VELCADE [Suspect]
     Indication: MULTIPLE MYELOMA
     Dosage: 1.3 MG/M2, CYCLIC
     Route: 042
     Dates: start: 20110401
  3. PREDNISOLONE [Concomitant]
     Indication: MULTIPLE MYELOMA
     Dosage: UNK
     Route: 048
     Dates: start: 20110401

REACTIONS (1)
  - PHLEBITIS [None]
